FAERS Safety Report 9490476 (Version 1)
Quarter: 2013Q3

REPORT INFORMATION
  Report Type: Spontaneous
  Country: TR (occurrence: TR)
  Receive Date: 20130830
  Receipt Date: 20130830
  Transmission Date: 20140515
  Serious: Yes (Hospitalization)
  Sender: FDA-Public Use
  Company Number: TR-RANBAXY-2013R1-72575

PATIENT
  Age: 56 Year
  Sex: Female

DRUGS (1)
  1. FENOFIBRATE [Suspect]
     Indication: PRODUCT USED FOR UNKNOWN INDICATION
     Dosage: 250 MG/ DAY
     Route: 065

REACTIONS (2)
  - Incorrect dose administered [Unknown]
  - Rhabdomyolysis [Recovered/Resolved]
